FAERS Safety Report 7623966-5 (Version None)
Quarter: 2011Q3

REPORT INFORMATION
  Report Type: 
  Country: None (occurrence: None)
  Receive Date: 20110720
  Receipt Date: 20110502
  Transmission Date: 20111222
  Serious: No
  Sender: FDA-Public Use
  Company Number: US-BRISTOL-MYERS SQUIBB COMPANY-15709934

PATIENT
  Sex: Male

DRUGS (1)
  1. YERVOY [Suspect]
     Dates: start: 20110421

REACTIONS (1)
  - PAIN IN EXTREMITY [None]
